FAERS Safety Report 21905733 (Version 2)
Quarter: 2023Q2

REPORT INFORMATION
  Report Type: Report from Study
  Country: RO (occurrence: RO)
  Receive Date: 20230124
  Receipt Date: 20230509
  Transmission Date: 20230722
  Serious: Yes (Disabling)
  Sender: FDA-Public Use
  Company Number: RO-UCBSA-2023002107

PATIENT
  Age: 8 Year
  Sex: Female
  Weight: 52 kg

DRUGS (5)
  1. BRIVARACETAM [Suspect]
     Active Substance: BRIVARACETAM
     Indication: Juvenile absence epilepsy
     Dosage: 9.2 MILLILITER, 2X/DAY (BID)
     Route: 048
     Dates: start: 20221011
  2. BRIVARACETAM [Suspect]
     Active Substance: BRIVARACETAM
     Dosage: 4.5 MILLILITER, 2X/DAY (BID)
     Route: 048
     Dates: start: 20230114
  3. CLONAZEPAM [Concomitant]
     Active Substance: CLONAZEPAM
     Indication: Epilepsy
     Dosage: UNK
  4. LAMOTRIGINE [Concomitant]
     Active Substance: LAMOTRIGINE
     Indication: Petit mal epilepsy
     Dosage: UNK
  5. VALPROIC ACID [Concomitant]
     Active Substance: VALPROIC ACID
     Indication: Epilepsy
     Dosage: UNK

REACTIONS (5)
  - Anxiety [Recovering/Resolving]
  - Communication disorder [Recovering/Resolving]
  - Irritability [Recovering/Resolving]
  - Insomnia [Recovering/Resolving]
  - Somnolence [Recovering/Resolving]

NARRATIVE: CASE EVENT DATE: 20230110
